FAERS Safety Report 12549205 (Version 1)
Quarter: 2016Q3

REPORT INFORMATION
  Report Type: Report from Study
  Country: US (occurrence: US)
  Receive Date: 20160712
  Receipt Date: 20160712
  Transmission Date: 20161109
  Serious: Yes (Other)
  Sender: FDA-Public Use
  Company Number: PHEH2016US016859

PATIENT
  Age: 54 Year
  Sex: Female

DRUGS (1)
  1. GLEEVEC [Suspect]
     Active Substance: IMATINIB MESYLATE
     Indication: PRODUCT USED FOR UNKNOWN INDICATION
     Dosage: UNK
     Route: 065

REACTIONS (6)
  - Peripheral swelling [Unknown]
  - Urticaria [Unknown]
  - Cerebrovascular accident [Unknown]
  - Nervous system disorder [Unknown]
  - Lip swelling [Unknown]
  - Seizure [Unknown]

NARRATIVE: CASE EVENT DATE: 201507
